FAERS Safety Report 24673146 (Version 1)
Quarter: 2024Q4

REPORT INFORMATION
  Report Type: Spontaneous
  Country: US (occurrence: US)
  Receive Date: 20241128
  Receipt Date: 20241128
  Transmission Date: 20250114
  Serious: No
  Sender: IBSA INSTITUT BIOCHIMIQUE
  Company Number: US-IBSA PHARMA INC.-2023IBS000798

PATIENT

DRUGS (1)
  1. TIROSINT [Suspect]
     Active Substance: LEVOTHYROXINE SODIUM
     Indication: Thyroid disorder
     Dosage: 88 MICROGRAM, QD
     Route: 048

REACTIONS (6)
  - Weight increased [Unknown]
  - Swelling [Unknown]
  - Cardiac discomfort [Unknown]
  - Blood test abnormal [Unknown]
  - Intentional product use issue [Unknown]
  - Product dose omission issue [Unknown]
